FAERS Safety Report 8842786 (Version 1)
Quarter: 2012Q4

REPORT INFORMATION
  Report Type: 
  Country: NL (occurrence: NL)
  Receive Date: 20121016
  Receipt Date: 20121016
  Transmission Date: 20130627
  Serious: Yes (Death, Hospitalization)
  Sender: FDA-Public Use
  Company Number: NL-ELI_LILLY_AND_COMPANY-EWC990102525

PATIENT
  Age: 23 Year
  Sex: Male
  Weight: 102 kg

DRUGS (3)
  1. ZYPREXA [Suspect]
     Indication: SCHIZOPHRENIA
     Dosage: 10 mg, 2/D
     Route: 048
     Dates: start: 19980305, end: 19980924
  2. AKINETON [Concomitant]
     Dosage: 2 mg, 3/D
     Dates: end: 199803
  3. CISORDINOL [Concomitant]
     Dosage: 10 mg, 3/D
     Dates: end: 19980305

REACTIONS (2)
  - Pulmonary embolism [Fatal]
  - Conduction disorder [Unknown]
